FAERS Safety Report 10073851 (Version 2)
Quarter: 2014Q2

REPORT INFORMATION
  Report Type: Spontaneous
  Country: PT (occurrence: PT)
  Receive Date: 20140411
  Receipt Date: 20140501
  Transmission Date: 20141212
  Serious: Yes (Hospitalization, Other)
  Sender: FDA-Public Use
  Company Number: PT-009507513-1404PRT006921

PATIENT
  Age: 72 Year
  Sex: Female

DRUGS (2)
  1. ALENDRONATE SODIUM (+) CHOLECALCIFEROL [Suspect]
     Indication: OSTEOPOROSIS
     Dosage: 72MG/2800UI, QW
     Route: 048
  2. ALENDRONATE SODIUM [Suspect]
     Indication: OSTEOPOROSIS
     Dosage: 10MG/DAY

REACTIONS (2)
  - Femur fracture [Recovering/Resolving]
  - Femur fracture [Recovering/Resolving]
